FAERS Safety Report 6304276-5 (Version None)
Quarter: 2009Q3

REPORT INFORMATION
  Report Type: 
  Country: None (occurrence: None)
  Receive Date: 20090811
  Receipt Date: 20090801
  Transmission Date: 20100115
  Serious: Yes (Hospitalization)
  Sender: FDA-Public Use
  Company Number: US-PFIZER INC-2007004623

PATIENT
  Sex: Female
  Weight: 74.84 kg

DRUGS (26)
  1. NAPROXEN [Suspect]
     Indication: OSTEOARTHRITIS
     Dosage: UNK
     Route: 048
     Dates: start: 20061220, end: 20070113
  2. BLINDED *NO SUBJECT DRUG [Suspect]
     Indication: OSTEOARTHRITIS
     Dosage: UNK
     Route: 048
     Dates: start: 20061220, end: 20070113
  3. BLINDED *PLACEBO [Suspect]
     Indication: OSTEOARTHRITIS
     Dosage: UNK
     Route: 048
     Dates: start: 20061220, end: 20070113
  4. BLINDED CELECOXIB [Suspect]
     Indication: OSTEOARTHRITIS
     Dosage: UNK
     Route: 048
     Dates: start: 20061220, end: 20070113
  5. IBUPROFEN [Suspect]
     Indication: OSTEOARTHRITIS
     Dosage: UNK
     Route: 048
     Dates: start: 20061220, end: 20070113
  6. NAPROXEN [Suspect]
     Dosage: UNK
     Route: 048
     Dates: start: 20061220, end: 20070113
  7. ULTRACET [Concomitant]
     Dosage: HS
     Route: 048
     Dates: start: 20020724
  8. ATENOLOL [Concomitant]
     Dosage: 15G/25G,AM/HS
     Route: 048
     Dates: start: 20000802
  9. MULTI-VITAMINS [Concomitant]
     Route: 048
     Dates: start: 20010813
  10. VITACAL [Concomitant]
     Route: 048
     Dates: start: 20060317
  11. LECITHIN [Concomitant]
     Route: 048
     Dates: start: 20020107
  12. ROSUVASTATIN CALCIUM [Concomitant]
     Route: 048
     Dates: start: 20060104
  13. FLAXSEED OIL [Concomitant]
     Route: 048
     Dates: start: 20051003
  14. GLUCOTROL [Concomitant]
     Route: 048
     Dates: start: 20060627
  15. DIPHENHYDRAMINE HCL [Concomitant]
     Route: 048
     Dates: start: 20020107
  16. CYCLOBENZAPRINE HCL [Concomitant]
     Dosage: HS
     Route: 048
     Dates: start: 20060627
  17. LYSINE [Concomitant]
     Route: 048
     Dates: start: 20020107
  18. LEVOTHYROXINE [Concomitant]
     Route: 048
     Dates: start: 20050310
  19. EZETIMIBE [Concomitant]
     Route: 048
     Dates: start: 20050310
  20. DICYCLOMINE [Concomitant]
     Route: 048
     Dates: start: 20061116
  21. LANSOPRAZOLE [Concomitant]
     Route: 048
     Dates: start: 20070113, end: 20070117
  22. ASPIRIN [Concomitant]
     Dosage: 1 TAB
     Route: 048
     Dates: start: 20070113
  23. LISINOPRIL [Concomitant]
     Route: 048
     Dates: start: 20070113
  24. CALCIUM WITH VITAMIN D [Concomitant]
     Route: 048
     Dates: start: 20060307
  25. DICYCLOMINE [Concomitant]
     Route: 048
     Dates: start: 20061116
  26. PRAZSOIN HCL [Concomitant]

REACTIONS (1)
  - HEART RATE IRREGULAR [None]
